FAERS Safety Report 8299911-9 (Version None)
Quarter: 2012Q2

REPORT INFORMATION
  Report Type: 
  Country: None (occurrence: None)
  Receive Date: 20120420
  Receipt Date: 20120413
  Transmission Date: 20120825
  Serious: Yes (Other)
  Sender: FDA-Public Use
  Company Number: GB-AMGEN-GBRSP2012023378

PATIENT
  Age: 86 Year
  Sex: Female
  Weight: 65 kg

DRUGS (22)
  1. VALSARTAN [Concomitant]
     Dosage: UNK
     Dates: start: 20111228
  2. DENOSUMAB [Suspect]
     Indication: OSTEOPOROSIS
     Dosage: 60 MG/ML, UNK
     Dates: start: 20120229
  3. DIHYDROCODEINE BITARTRATE INJ [Concomitant]
     Dosage: UNK
     Dates: start: 20111219
  4. EURAX [Concomitant]
     Dosage: UNK
     Dates: start: 20111228
  5. IVABRADINE [Concomitant]
     Dosage: UNK
     Dates: start: 20111219
  6. WARFARIN SODIUM [Concomitant]
     Dosage: UNK
     Dates: start: 20111219
  7. FERROUS SULFATE TAB [Concomitant]
     Dosage: UNK
     Dates: start: 20111228
  8. ISOSORBIDE MONONITRATE [Concomitant]
     Dosage: UNK
     Dates: start: 20111228
  9. ACETAMINOPHEN [Concomitant]
     Dosage: UNK
     Dates: start: 20120223
  10. TIOTROPIUM BROMIDE [Concomitant]
     Dosage: UNK
     Dates: start: 20111219
  11. CALCICHEW D3 [Concomitant]
  12. HYDROCORTISONE [Concomitant]
     Dosage: UNK
     Dates: end: 20120327
  13. SALMETEROL [Concomitant]
     Dosage: UNK
     Dates: start: 20111219
  14. FUROSEMIDE [Concomitant]
     Dosage: UNK
     Dates: start: 20111228
  15. LANSOPRAZOLE [Concomitant]
     Dosage: UNK
     Dates: start: 20111219
  16. LORAZEPAM [Concomitant]
     Dosage: UNK
     Dates: start: 20111219
  17. CETOMACROGOL                       /02066601/ [Concomitant]
     Dosage: UNK
     Dates: start: 20111219
  18. DERMOL                             /01330701/ [Concomitant]
  19. GLYCERYL TRINITRATE [Concomitant]
     Dosage: UNK
     Dates: start: 20111219
  20. SIMVASTATIN [Concomitant]
     Dosage: UNK
     Dates: start: 20111228
  21. VISCOTEARS [Concomitant]
     Dosage: UNK
     Dates: start: 20120120
  22. DICLOFENAC SODIUM [Concomitant]
     Dosage: UNK
     Dates: start: 20120116

REACTIONS (4)
  - ERYTHEMA [None]
  - MALAISE [None]
  - INFECTION [None]
  - SKIN TIGHTNESS [None]
